FAERS Safety Report 10160365 (Version 1)
Quarter: 2014Q2

REPORT INFORMATION
  Report Type: Spontaneous
  Country: CA (occurrence: CA)
  Receive Date: 20140508
  Receipt Date: 20140508
  Transmission Date: 20141212
  Serious: Yes (Hospitalization, Other)
  Sender: FDA-Public Use
  Company Number: CA-ROXANE LABORATORIES, INC.-2014-RO-00709RO

PATIENT
  Age: 68 Year
  Sex: Female

DRUGS (5)
  1. PREDNISONE [Suspect]
     Indication: CROHN^S DISEASE
     Dosage: 15 MG
     Route: 048
  2. METHOTREXATE [Suspect]
     Indication: CROHN^S DISEASE
     Route: 030
  3. TRIMETHOPRIM-SULFAMETHOXAZOLE [Suspect]
     Indication: PROPHYLAXIS
     Route: 065
  4. FOLIC ACID [Concomitant]
     Dosage: 1 MG
     Route: 065
  5. ALENDRONATE [Concomitant]
     Dosage: 10 MG
     Route: 065

REACTIONS (3)
  - Toxicity to various agents [Recovered/Resolved]
  - Dehydration [Recovered/Resolved]
  - Renal impairment [Recovered/Resolved]
